FAERS Safety Report 6844822-6 (Version None)
Quarter: 2010Q3

REPORT INFORMATION
  Report Type: 
  Country: None (occurrence: None)
  Receive Date: 20100715
  Receipt Date: 20100707
  Transmission Date: 20110219
  Serious: Yes (Other)
  Sender: FDA-Public Use
  Company Number: US-PFIZER INC-2010086353

PATIENT
  Sex: Female

DRUGS (16)
  1. XANAX [Interacting]
     Indication: ANXIETY
     Dosage: UNK, DAILY
     Route: 048
  2. XANAX [Interacting]
     Indication: INSOMNIA
  3. NEURONTIN [Interacting]
     Dosage: 300 MG, DAILY
  4. MIRTAZAPINE [Interacting]
     Dosage: UNK
  5. PRISTIQ [Suspect]
     Dosage: 50 MG, DAILY
     Route: 048
     Dates: start: 20100704
  6. LEVOXYL [Interacting]
     Indication: HYPOTHYROIDISM
     Dosage: 100 MG, UNK
  7. NEXIUM [Interacting]
     Indication: GASTROOESOPHAGEAL REFLUX DISEASE
     Dosage: UNK, AS NEEDED
  8. CYMBALTA [Interacting]
     Indication: PAIN
     Dosage: UNK
  9. CYMBALTA [Interacting]
  10. SIMVASTATIN [Interacting]
     Indication: BLOOD CHOLESTEROL INCREASED
     Dosage: UNK
  11. ADVAIR DISKUS 100/50 [Interacting]
     Indication: ASTHMA
     Dosage: UNK
  12. FLOVENT [Interacting]
     Indication: ASTHMA
     Dosage: UNK
  13. ATROVENT [Interacting]
     Indication: ASTHMA
     Dosage: UNK
  14. ADVIL LIQUI-GELS [Interacting]
     Indication: PAIN
     Dosage: UNK
  15. ACETYLSALICYLIC ACID [Interacting]
     Indication: PAIN
     Dosage: UNK
  16. MIRALAX [Concomitant]
     Indication: CONSTIPATION
     Dosage: UNK

REACTIONS (9)
  - BLOOD GLUCOSE DECREASED [None]
  - DRUG INTERACTION [None]
  - DYSPEPSIA [None]
  - FEELING ABNORMAL [None]
  - IMPAIRED DRIVING ABILITY [None]
  - PAIN [None]
  - RASH [None]
  - SOMNOLENCE [None]
  - ULCER [None]
